FAERS Safety Report 23708194 (Version 2)
Quarter: 2025Q1

REPORT INFORMATION
  Report Type: Spontaneous
  Country: FR (occurrence: FR)
  Receive Date: 20240404
  Receipt Date: 20250326
  Transmission Date: 20250409
  Serious: Yes (Hospitalization, Other)
  Sender: ORGANON
  Company Number: None

PATIENT
  Age: 55 Year
  Sex: Male
  Weight: 67 kg

DRUGS (8)
  1. MIRTAZAPINE [Interacting]
     Active Substance: MIRTAZAPINE
     Dosage: 15 MILLIGRAM, QD
     Route: 048
  2. TRIUMEQ [Interacting]
     Active Substance: ABACAVIR SULFATE\DOLUTEGRAVIR SODIUM\LAMIVUDINE
     Indication: HIV infection
     Dosage: 1 DOSAGE FORM, QD
     Route: 048
     Dates: start: 202306
  3. TEGRETOL [Interacting]
     Active Substance: CARBAMAZEPINE
     Indication: Epilepsy
     Dosage: 2 DOSAGE FORM, QD (PROLONGED RELEASE SCORED FILM COATED TABLET)
     Route: 048
     Dates: end: 20240112
  4. REYATAZ [Interacting]
     Active Substance: ATAZANAVIR SULFATE
     Indication: HIV infection
     Dosage: 1 DOSAGE FORM, QD
     Route: 048
  5. ZOPICLONE [Interacting]
     Active Substance: ZOPICLONE
     Dosage: 7.5 MILLIGRAM, QD
     Route: 048
  6. NORVIR [Interacting]
     Active Substance: RITONAVIR
     Indication: HIV infection
     Dosage: 1 DOSAGE FORM, QD
     Route: 048
  7. FYCOMPA [Concomitant]
     Active Substance: PERAMPANEL
     Indication: Epilepsy
     Dosage: 1 DOSAGE FORM, QD
     Route: 048
  8. NARATRIPTAN HYDROCHLORIDE [Concomitant]
     Active Substance: NARATRIPTAN HYDROCHLORIDE
     Indication: Migraine
     Dosage: 1 DOSAGE FORM, AS NECESSARY
     Route: 048

REACTIONS (4)
  - Somnolence [Recovered/Resolved]
  - Drug interaction [Recovered/Resolved]
  - Drug interaction [Recovered/Resolved]
  - Drug level decreased [Recovered/Resolved]

NARRATIVE: CASE EVENT DATE: 20230601
